FAERS Safety Report 7995035-6 (Version None)
Quarter: 2011Q4

REPORT INFORMATION
  Report Type: 
  Country: None (occurrence: None)
  Receive Date: 20111220
  Receipt Date: 20111216
  Transmission Date: 20120403
  Serious: Yes (Death, Other)
  Sender: FDA-Public Use
  Company Number: US-PFIZER INC-2011236550

PATIENT
  Sex: Female
  Weight: 66 kg

DRUGS (10)
  1. CITALOPRAM HYDROCHLORIDE [Concomitant]
     Dosage: 40 MG, DAILY
  2. DIAZEPAM [Suspect]
     Dosage: UNK
  3. OXYCODONE HCL [Suspect]
     Dosage: UNK
  4. CLONAZEPAM [Concomitant]
     Dosage: 1 MG, 2X/DAY
  5. ZOLPIDEM [Concomitant]
     Dosage: 10 MG, BEDTIME
  6. DEXTROAMPHETAMINE [Concomitant]
     Dosage: 10 MG, BEDTIME
  7. HYDROCODONE [Concomitant]
     Dosage: 5 / 500; UNK
  8. VENLAFAXINE HCL [Suspect]
     Dosage: UNK
  9. TEMAZEPAM [Suspect]
     Dosage: 30 MG, 1 IN THE EVENING
  10. CONCERTA [Concomitant]
     Dosage: 36 MG, 2 TABLETS DAILY

REACTIONS (3)
  - CARDIAC ARREST [None]
  - MULTIPLE DRUG OVERDOSE ACCIDENTAL [None]
  - DEATH [None]
